FAERS Safety Report 13379774 (Version 1)
Quarter: 2017Q1

REPORT INFORMATION
  Report Type: Report from Study
  Country: US (occurrence: US)
  Receive Date: 20170328
  Receipt Date: 20170328
  Transmission Date: 20170429
  Serious: Yes (Hospitalization, Other)
  Sender: FDA-Public Use
  Company Number: US-TAKEDA-2017TUS006033

PATIENT
  Sex: Female
  Weight: 56.24 kg

DRUGS (2)
  1. MORPHINE [Suspect]
     Active Substance: MORPHINE
     Indication: PRODUCT USED FOR UNKNOWN INDICATION
     Dosage: UNK
     Route: 065
  2. VEDOLIZUMAB [Suspect]
     Active Substance: VEDOLIZUMAB
     Indication: CROHN^S DISEASE
     Dosage: UNK
     Route: 042
     Dates: start: 2016, end: 201610

REACTIONS (5)
  - Atrial fibrillation [Recovered/Resolved]
  - White blood cell count increased [Recovered/Resolved]
  - Apnoea [Recovered/Resolved]
  - Large intestine perforation [Recovered/Resolved]
  - Anaemia [Recovered/Resolved]
